FAERS Safety Report 25169807 (Version 3)
Quarter: 2025Q2

REPORT INFORMATION
  Report Type: Spontaneous
  Country: US (occurrence: US)
  Receive Date: 20250407
  Receipt Date: 20250609
  Transmission Date: 20250717
  Serious: No
  Sender: ROCHE
  Company Number: US-ROCHE-10000248768

PATIENT
  Age: 43 Year
  Sex: Female

DRUGS (2)
  1. OCREVUS [Suspect]
     Active Substance: OCRELIZUMAB
     Indication: Primary progressive multiple sclerosis
     Route: 042
     Dates: start: 202308, end: 202503
  2. OCREVUS ZUNOVO [Suspect]
     Active Substance: HYALURONIDASE-OCSQ\OCRELIZUMAB
     Indication: Primary progressive multiple sclerosis
     Route: 058
     Dates: start: 20250320

REACTIONS (13)
  - Multiple sclerosis relapse [Recovering/Resolving]
  - Blood pressure decreased [Recovering/Resolving]
  - Brain fog [Recovering/Resolving]
  - Vision blurred [Recovering/Resolving]
  - Fungal infection [Recovering/Resolving]
  - Throat irritation [Recovering/Resolving]
  - Heart rate increased [Recovering/Resolving]
  - Headache [Recovering/Resolving]
  - Pain [Recovering/Resolving]
  - Fatigue [Recovering/Resolving]
  - Cough [Recovered/Resolved]
  - Erythema [Recovering/Resolving]
  - Injection site pain [Recovering/Resolving]
